FAERS Safety Report 10703781 (Version 9)
Quarter: 2020Q3

REPORT INFORMATION
  Report Type: Spontaneous
  Country: US (occurrence: US)
  Receive Date: 20150112
  Receipt Date: 20200917
  Transmission Date: 20201102
  Serious: Yes (Hospitalization, Other)
  Sender: FDA-Public Use
  Company Number: US-PFIZER INC-2015011616

PATIENT
  Age: 71 Year
  Sex: Female
  Weight: 73 kg

DRUGS (8)
  1. LYRICA [Suspect]
     Active Substance: PREGABALIN
     Dosage: 50 MG, 3X/DAY
  2. LYRICA [Suspect]
     Active Substance: PREGABALIN
     Dosage: 75 MG, 3X/DAY (1 CAPSULE BY MOUTH 3 TIMES DAILY)
     Route: 048
  3. LYRICA [Suspect]
     Active Substance: PREGABALIN
     Indication: NEURALGIA
     Dosage: 225 MG, DAILY (3?75MG CAPSULES)
  4. LYRICA [Suspect]
     Active Substance: PREGABALIN
     Dosage: 150 MG, DAILY (2?75MG CAPSULES DAILY)
     Dates: start: 201911
  5. LYRICA [Suspect]
     Active Substance: PREGABALIN
     Dosage: 300 MG, UNK (3?100MGS)
  6. LYRICA [Suspect]
     Active Substance: PREGABALIN
     Dosage: UNK (100 MG AND 50 MG)
     Dates: start: 2020
  7. LYRICA [Suspect]
     Active Substance: PREGABALIN
     Dosage: 200 MG, 2X/DAY (2?100MG CAPSULES )
     Dates: start: 2019
  8. LYRICA [Suspect]
     Active Substance: PREGABALIN
     Indication: FIBROMYALGIA
     Dosage: 75 MG, 1X/DAY
     Route: 048
     Dates: start: 2006

REACTIONS (11)
  - Prescription drug used without a prescription [Unknown]
  - Blood pressure increased [Unknown]
  - Joint swelling [Unknown]
  - Hip fracture [Unknown]
  - Ankle fracture [Unknown]
  - Hypotension [Unknown]
  - Intentional product misuse [Unknown]
  - Loss of consciousness [Unknown]
  - Blood pressure fluctuation [Unknown]
  - Arthralgia [Unknown]
  - Hypoacusis [Unknown]

NARRATIVE: CASE EVENT DATE: 2016
